FAERS Safety Report 25127703 (Version 1)
Quarter: 2025Q1

REPORT INFORMATION
  Report Type: Spontaneous
  Country: US (occurrence: US)
  Receive Date: 20250327
  Receipt Date: 20250327
  Transmission Date: 20250409
  Serious: No
  Sender: DR REDDYS
  Company Number: US-DRL-USA-USA/2025/03/004036

PATIENT
  Age: 60 Year
  Sex: Female
  Weight: 83.0074 kg

DRUGS (2)
  1. NICOTINE [Suspect]
     Active Substance: NICOTINE
     Indication: Smoking cessation therapy
     Dosage: DURATION: 6 WEEKS
     Route: 062
     Dates: start: 20250109
  2. Bupropion (Albutrin)Tablets [Concomitant]
     Indication: Antidepressant therapy
     Route: 065

REACTIONS (2)
  - Memory impairment [Not Recovered/Not Resolved]
  - Weight increased [Not Recovered/Not Resolved]
